FAERS Safety Report 15389697 (Version 1)
Quarter: 2018Q3

REPORT INFORMATION
  Report Type: Spontaneous
  Country: US (occurrence: US)
  Receive Date: 20180917
  Receipt Date: 20180917
  Transmission Date: 20181010
  Serious: No
  Sender: FDA-Public Use
  Company Number: US-AUROBINDO-AUR-APU-2017-42908

PATIENT
  Sex: Male
  Weight: 108 kg

DRUGS (1)
  1. PAROXETINE TABLETS USP 40MG [Suspect]
     Active Substance: PAROXETINE
     Indication: DEPRESSION
     Dosage: 40 MG, DAILY
     Route: 065
     Dates: end: 20171027

REACTIONS (1)
  - Ejaculation failure [Not Recovered/Not Resolved]
